FAERS Safety Report 7569523-0 (Version None)
Quarter: 2011Q2

REPORT INFORMATION
  Report Type: 
  Country: None (occurrence: None)
  Receive Date: 20110624
  Receipt Date: 20110613
  Transmission Date: 20111010
  Serious: No
  Sender: FDA-Public Use
  Company Number: US-BIOGENIDEC-2011BI022116

PATIENT
  Age: 37 Year
  Sex: Female

DRUGS (2)
  1. AVONEX [Suspect]
     Indication: MULTIPLE SCLEROSIS
     Route: 030
     Dates: start: 20110608
  2. AVONEX [Suspect]
     Route: 030
     Dates: start: 20010101

REACTIONS (6)
  - DIARRHOEA [None]
  - TREMOR [None]
  - MYALGIA [None]
  - PYREXIA [None]
  - FEELING HOT [None]
  - HYPERHIDROSIS [None]
